FAERS Safety Report 16144686 (Version 1)
Quarter: 2019Q2

REPORT INFORMATION
  Report Type: Spontaneous
  Country: US (occurrence: US)
  Receive Date: 20190401
  Receipt Date: 20190401
  Transmission Date: 20190711
  Serious: Yes (Other)
  Sender: FDA-Public Use
  Company Number: None

PATIENT
  Age: 62 Year
  Sex: Female
  Weight: 100.8 kg

DRUGS (1)
  1. CONTRAVE [Suspect]
     Active Substance: BUPROPION HYDROCHLORIDE\NALTREXONE HYDROCHLORIDE
     Indication: WEIGHT DECREASED
     Dosage: ?          QUANTITY:1 TABLET(S);OTHER FREQUENCY:STARTS WITH ONE;?
     Route: 048
     Dates: start: 20190309, end: 20190327

REACTIONS (7)
  - Thrombosis [None]
  - Dizziness [None]
  - Nausea [None]
  - Haematochezia [None]
  - Asthenia [None]
  - Abdominal pain upper [None]
  - Cold sweat [None]

NARRATIVE: CASE EVENT DATE: 20190330
